FAERS Safety Report 9749828 (Version 6)
Quarter: 2014Q1

REPORT INFORMATION
  Report Type: Spontaneous
  Country: US (occurrence: US)
  Receive Date: 20131212
  Receipt Date: 20140103
  Transmission Date: 20141002
  Serious: No
  Sender: FDA-Public Use
  Company Number: US-PFIZER INC-2013347493

PATIENT
  Age: 45 Year
  Sex: Female
  Weight: 86.17 kg

DRUGS (6)
  1. LYRICA [Suspect]
     Indication: FIBROMYALGIA
     Dosage: 75 MG, 2X/DAY, 150MG DAILY
  2. LYRICA [Suspect]
     Dosage: 150 MG, 2X/DAY
  3. LYRICA [Suspect]
     Dosage: 150 MG, 1X/DAY
  4. LYRICA [Suspect]
     Dosage: 75 MG, 2X/DAY
     Route: 048
  5. LYRICA [Suspect]
     Dosage: 150 MG, 2X/DAY
     Route: 048
  6. MOBIC [Concomitant]
     Indication: ARTHRITIS
     Dosage: 50 MG, DAILY
     Route: 048

REACTIONS (4)
  - Dry mouth [Unknown]
  - Weight increased [Unknown]
  - Drug ineffective [Unknown]
  - Cough [Unknown]
